FAERS Safety Report 7277734-7 (Version None)
Quarter: 2011Q1

REPORT INFORMATION
  Report Type: 
  Country: None (occurrence: None)
  Receive Date: 20110207
  Receipt Date: 20110202
  Transmission Date: 20110831
  Serious: No
  Sender: FDA-Public Use
  Company Number: US-PFIZER INC-2011000371

PATIENT
  Age: 78 Year
  Sex: Female
  Weight: 65.76 kg

DRUGS (5)
  1. OMEPRAZOLE [Concomitant]
  2. FLAXSEED OIL [Concomitant]
  3. ADVIL PM [Suspect]
     Dosage: 2 CAPLETS, 1X/DAY
     Route: 048
     Dates: start: 20101229, end: 20101229
  4. CRESTOR [Concomitant]
  5. ADALAT [Concomitant]

REACTIONS (1)
  - DRUG INEFFECTIVE [None]
